FAERS Safety Report 14877169 (Version 2)
Quarter: 2018Q2

REPORT INFORMATION
  Report Type: Spontaneous
  Country: FR (occurrence: FR)
  Receive Date: 20180510
  Receipt Date: 20180529
  Transmission Date: 20180711
  Serious: Yes (Hospitalization)
  Sender: FDA-Public Use
  Company Number: FR-BAUSCH-BL-2018-013020

PATIENT
  Age: 88 Year
  Sex: Male
  Weight: 94 kg

DRUGS (16)
  1. RIVASTIGMINE BASE [Suspect]
     Active Substance: RIVASTIGMINE
     Route: 048
  2. APROVEL [Suspect]
     Active Substance: IRBESARTAN
     Indication: HYPERTENSION
     Dosage: 1 DF
     Route: 048
     Dates: end: 20180306
  3. LANTUS [Suspect]
     Active Substance: INSULIN GLARGINE
     Indication: DIABETES MELLITUS
     Route: 058
     Dates: end: 20180306
  4. METFORMINE [Suspect]
     Active Substance: METFORMIN HYDROCHLORIDE
     Indication: DIABETES MELLITUS
     Route: 048
  5. RIVASTIGMINE BASE [Suspect]
     Active Substance: RIVASTIGMINE
     Indication: DEMENTIA
     Route: 048
  6. AERIUS [Suspect]
     Active Substance: DESLORATADINE
     Indication: HYPERSENSITIVITY
     Route: 048
     Dates: end: 20180306
  7. LYRICA [Suspect]
     Active Substance: PREGABALIN
     Dosage: DOSE REDUCED
     Route: 048
  8. RIVASTIGMINE BASE [Suspect]
     Active Substance: RIVASTIGMINE
     Route: 048
     Dates: end: 20180306
  9. ESOMEPRAZOLE [Suspect]
     Active Substance: ESOMEPRAZOLE
     Indication: PRODUCT USED FOR UNKNOWN INDICATION
     Route: 048
     Dates: end: 20180306
  10. ALLOPURINOL. [Concomitant]
     Active Substance: ALLOPURINOL
     Indication: PRODUCT USED FOR UNKNOWN INDICATION
  11. PLAVIX [Suspect]
     Active Substance: CLOPIDOGREL BISULFATE
     Indication: CORONARY ARTERIAL STENT INSERTION
     Dosage: 1 DF
     Route: 048
     Dates: end: 20180306
  12. LYRICA [Suspect]
     Active Substance: PREGABALIN
     Indication: PAIN
     Route: 048
  13. DIFFU K [Concomitant]
     Active Substance: POTASSIUM CHLORIDE
     Indication: PRODUCT USED FOR UNKNOWN INDICATION
  14. NOVORAPID [Suspect]
     Active Substance: INSULIN ASPART
     Indication: DIABETES MELLITUS
     Route: 058
  15. RIVASTIGMINE BASE [Suspect]
     Active Substance: RIVASTIGMINE
     Indication: CORONARY ARTERY DISEASE
     Route: 048
  16. NEBIVOLOL. [Suspect]
     Active Substance: NEBIVOLOL
     Indication: CORONARY ARTERY DISEASE
     Route: 048

REACTIONS (3)
  - Fall [Recovered/Resolved]
  - Rhabdomyolysis [Recovered/Resolved]
  - Malaise [Recovered/Resolved]

NARRATIVE: CASE EVENT DATE: 20180306
